FAERS Safety Report 16801242 (Version 1)
Quarter: 2019Q3

REPORT INFORMATION
  Report Type: Spontaneous
  Country: US (occurrence: US)
  Receive Date: 20190912
  Receipt Date: 20190912
  Transmission Date: 20191005
  Serious: No
  Sender: FDA-Public Use
  Company Number: US-KALA PHARAMACEUTICALS-2019KLA00024

PATIENT
  Age: 87 Year
  Sex: Female
  Weight: 49.89 kg

DRUGS (1)
  1. INVELTYS [Suspect]
     Active Substance: LOTEPREDNOL ETABONATE
     Indication: CATARACT OPERATION
     Dosage: 1 DROP EACH EYE, 2X/DAY
     Route: 047
     Dates: start: 20190606

REACTIONS (3)
  - Eye irritation [Recovering/Resolving]
  - Incorrect product administration duration [Not Recovered/Not Resolved]
  - Exposure via skin contact [Recovered/Resolved]

NARRATIVE: CASE EVENT DATE: 20190606
